FAERS Safety Report 7907866-9 (Version None)
Quarter: 2011Q4

REPORT INFORMATION
  Report Type: 
  Country: None (occurrence: None)
  Receive Date: 20111110
  Receipt Date: 20111026
  Transmission Date: 20120403
  Serious: Yes (Hospitalization, Other)
  Sender: FDA-Public Use
  Company Number: US-ELI_LILLY_AND_COMPANY-US201107003916

PATIENT
  Sex: Male

DRUGS (11)
  1. FISH OIL [Concomitant]
  2. VITAMIN D [Concomitant]
  3. SIMVASTATIN [Concomitant]
  4. METFORMIN HCL [Concomitant]
  5. AMLODIPINE [Concomitant]
  6. FORTEO [Suspect]
     Indication: OSTEOPOROSIS
     Dosage: 20 UG, QD
     Route: 058
     Dates: start: 20100901
  7. FORTEO [Suspect]
     Dosage: 20 UG, QD
     Route: 058
  8. HYDROCODONE BITARTRATE [Concomitant]
  9. LISINOPRIL [Concomitant]
  10. DIAZEPAM [Concomitant]
  11. PRIMIDONE [Concomitant]

REACTIONS (5)
  - HIP FRACTURE [None]
  - FALL [None]
  - ASTHENIA [None]
  - DECUBITUS ULCER [None]
  - BALANCE DISORDER [None]
